FAERS Safety Report 12453804 (Version 2)
Quarter: 2016Q2

REPORT INFORMATION
  Report Type: Report from Study
  Country: US (occurrence: US)
  Receive Date: 20160609
  Receipt Date: 20160623
  Transmission Date: 20160815
  Serious: Yes (Hospitalization)
  Sender: FDA-Public Use
  Company Number: US-VERTEX PHARMACEUTICALS-2016-003548

PATIENT
  Sex: Male

DRUGS (1)
  1. ORKAMBI [Suspect]
     Active Substance: IVACAFTOR\LUMACAFTOR
     Indication: CYSTIC FIBROSIS
     Route: 048

REACTIONS (8)
  - Night sweats [Unknown]
  - Insomnia [Unknown]
  - Hospitalisation [Unknown]
  - Cough [Unknown]
  - Fatigue [Unknown]
  - Liver function test increased [Unknown]
  - Chest discomfort [Unknown]
  - Drug dose omission [Unknown]
